FAERS Safety Report 23646037 (Version 1)
Quarter: 2024Q1

REPORT INFORMATION
  Report Type: Spontaneous
  Country: AE (occurrence: AE)
  Receive Date: 20240319
  Receipt Date: 20240319
  Transmission Date: 20240410
  Serious: Yes (Hospitalization)
  Sender: FDA-Public Use
  Company Number: AE-BoehringerIngelheim-2024-BI-014516

PATIENT
  Age: 64 Year
  Sex: Male

DRUGS (5)
  1. EMPAGLIFLOZIN [Suspect]
     Active Substance: EMPAGLIFLOZIN
     Indication: Diabetes mellitus inadequate control
     Dosage: FORM STRENGTH: 25 MILLIGRAM
  2. AMLODIPINE BESYLATE [Concomitant]
     Active Substance: AMLODIPINE BESYLATE
     Indication: Product used for unknown indication
  3. ROSUVASTATIN [Concomitant]
     Active Substance: ROSUVASTATIN
     Indication: Product used for unknown indication
  4. gliclazide 60 mg [Concomitant]
     Indication: Product used for unknown indication
  5. linagliptin-metformin 2.5-1000 mg [Concomitant]
     Indication: Product used for unknown indication
     Dosage: 2.5-1000 MG

REACTIONS (10)
  - Diabetic ketoacidosis [Unknown]
  - Leukocytosis [Unknown]
  - Hyponatraemia [Unknown]
  - Hyperglycaemia [Unknown]
  - Acute kidney injury [Unknown]
  - Enterobacter sepsis [Unknown]
  - Enterobacter tracheobronchitis [Unknown]
  - Urinary tract infection bacterial [Unknown]
  - Autoimmune haemolytic anaemia [Unknown]
  - Immune thrombocytopenia [Unknown]
